FAERS Safety Report 10673765 (Version 1)
Quarter: 2014Q4

REPORT INFORMATION
  Report Type: Spontaneous
  Country: US (occurrence: None)
  Receive Date: 20141223
  Receipt Date: 20141223
  Transmission Date: 20150529
  Serious: No
  Sender: FDA-Public Use
  Company Number: None

PATIENT
  Age: 75 Year
  Sex: Female
  Weight: 88.45 kg

DRUGS (5)
  1. TYLENOL [Concomitant]
     Active Substance: ACETAMINOPHEN
  2. METOPEROL TARTRATE [Concomitant]
  3. XARELTO [Suspect]
     Active Substance: RIVAROXABAN
     Indication: ANTICOAGULANT THERAPY
     Dates: start: 20141017, end: 20141114
  4. LISINAPRIL [Concomitant]
  5. SIMVISTATION [Concomitant]

REACTIONS (6)
  - Decreased appetite [None]
  - Abdominal pain [None]
  - Malaise [None]
  - Weight decreased [None]
  - Nausea [None]
  - Fatigue [None]

NARRATIVE: CASE EVENT DATE: 20141017
